FAERS Safety Report 8002832-X (Version None)
Quarter: 2011Q4

REPORT INFORMATION
  Report Type: 
  Country: None (occurrence: None)
  Receive Date: 20111222
  Receipt Date: 20101119
  Transmission Date: 20120403
  Serious: No
  Sender: FDA-Public Use
  Company Number: US-GLAXOSMITHKLINE-A0894262A

PATIENT
  Age: 79 Year
  Sex: Male

DRUGS (7)
  1. CO-Q10 [Concomitant]
  2. TOVIAZ [Suspect]
     Indication: PRODUCT USED FOR UNKNOWN INDICATION
     Dosage: 4MG AT NIGHT
     Dates: start: 20100719, end: 20101116
  3. FIBER SUPPLEMENT [Concomitant]
  4. RED YEAST RICE [Concomitant]
  5. UNKNOWN MEDICATION [Concomitant]
  6. AVODART [Suspect]
     Indication: BENIGN PROSTATIC HYPERPLASIA
     Dosage: 1CAP PER DAY
     Route: 048
     Dates: start: 20100628, end: 20101116
  7. MULTI-VITAMIN [Concomitant]

REACTIONS (4)
  - BREAST ENLARGEMENT [None]
  - MICTURITION URGENCY [None]
  - URINARY INCONTINENCE [None]
  - DRUG INEFFECTIVE [None]
